FAERS Safety Report 10209745 (Version 3)
Quarter: 2014Q2

REPORT INFORMATION
  Report Type: Report from Study
  Country: CA (occurrence: CA)
  Receive Date: 20140602
  Receipt Date: 20140616
  Transmission Date: 20141212
  Serious: Yes (Death, Hospitalization)
  Sender: FDA-Public Use
  Company Number: CA-ROCHE-1181239

PATIENT
  Age: 61 Year
  Sex: Male
  Weight: 49.3 kg

DRUGS (14)
  1. OBINUTUZUMAB [Suspect]
     Indication: B-CELL LYMPHOMA
     Dosage: DATE OF MOST RECENT DOSE WAS ON 06/NOV/2012, LAST DOSE WAS 250ML WITH CONCENTRATION 4MG/ML
     Route: 042
     Dates: start: 20111020
  2. BENDAMUSTINE [Suspect]
     Indication: B-CELL LYMPHOMA
     Dosage: DATE OF MOST RECENT DOSE WAS ON 07 MAR 2012, LAST DOSE WAS 151.2MG
     Route: 042
     Dates: start: 20111020
  3. HYDROCHLOROTHIAZIDE [Concomitant]
     Indication: HYPERTENSION
     Route: 065
  4. ASA [Concomitant]
     Route: 065
     Dates: start: 2010
  5. RAMIPRIL [Concomitant]
     Indication: HYPERTENSION
     Route: 065
  6. IPRATROPIUM BROMIDE [Concomitant]
     Indication: NASAL CONGESTION
     Dosage: 1 PUFF EVERY 4 HOURS
     Route: 065
     Dates: start: 201107
  7. SALBUTAMOL SULPHATE [Concomitant]
     Indication: NASAL CONGESTION
     Dosage: 1-2 PUFF AS REQUIRED
     Route: 065
     Dates: start: 201107
  8. PANTOLOC [Concomitant]
     Route: 048
     Dates: start: 2006
  9. QUETIAPINE FUMARATE [Concomitant]
     Indication: BIPOLAR I DISORDER
     Dosage: HALF TABLET
     Route: 065
  10. VALPROIC ACID [Concomitant]
     Indication: BIPOLAR I DISORDER
     Route: 065
     Dates: start: 1997
  11. TYLENOL #3 (CANADA) [Concomitant]
     Indication: ANALGESIC THERAPY
     Route: 065
     Dates: start: 20110815
  12. METOCLOPRAMIDE [Concomitant]
     Indication: NAUSEA
     Route: 065
     Dates: start: 20111114, end: 201112
  13. SENNA [Concomitant]
     Indication: CONSTIPATION
     Route: 048
     Dates: start: 20111003, end: 201111
  14. DOCUSATE SODIUM [Concomitant]
     Indication: CONSTIPATION
     Route: 048
     Dates: start: 20130115, end: 20130214

REACTIONS (2)
  - Staphylococcal bacteraemia [Fatal]
  - Pneumonia [Recovered/Resolved]
